FAERS Safety Report 5728529-4 (Version None)
Quarter: 2008Q2

REPORT INFORMATION
  Report Type: 
  Country: None (occurrence: None)
  Receive Date: 20080506
  Receipt Date: 20080124
  Transmission Date: 20081010
  Serious: No
  Sender: FDA-Public Use
  Company Number: A0706939A

PATIENT
  Age: 43 Year
  Sex: Female
  Weight: 62.6 kg

DRUGS (3)
  1. AMOXICILLIN [Suspect]
     Indication: PNEUMONIA
     Dates: start: 20070101, end: 20071005
  2. CHANTIX [Suspect]
     Indication: SMOKING CESSATION THERAPY
     Route: 048
     Dates: start: 20070927, end: 20071005
  3. ULTRAM [Suspect]
     Indication: PNEUMONIA
     Dates: start: 20070101, end: 20071005

REACTIONS (5)
  - AMNESIA [None]
  - BIPOLAR DISORDER [None]
  - DAYDREAMING [None]
  - NICOTINE DEPENDENCE [None]
  - THINKING ABNORMAL [None]
